FAERS Safety Report 5373530-6 (Version None)
Quarter: 2007Q2

REPORT INFORMATION
  Report Type: 
  Country: None (occurrence: None)
  Receive Date: 20070628
  Receipt Date: 20070622
  Transmission Date: 20071010
  Serious: Yes (Hospitalization, Disabling)
  Sender: FDA-Public Use
  Company Number: B0457738A

PATIENT
  Age: 37 Year
  Sex: Male
  Weight: 64 kg

DRUGS (1)
  1. PAXIL [Suspect]
     Indication: DEPRESSION
     Dosage: 40MG PER DAY
     Route: 048
     Dates: start: 20040101, end: 20060101

REACTIONS (12)
  - ABNORMAL BEHAVIOUR [None]
  - DELIRIUM [None]
  - DELUSION [None]
  - DELUSIONAL DISORDER, PERSECUTORY TYPE [None]
  - DRUG WITHDRAWAL SYNDROME [None]
  - HALLUCINATION [None]
  - HALLUCINATION, AUDITORY [None]
  - HYPERKINESIA [None]
  - MANIA [None]
  - PSYCHOTIC DISORDER [None]
  - RESTLESSNESS [None]
  - SPEECH DISORDER [None]
